FAERS Safety Report 25778682 (Version 1)
Quarter: 2025Q3

REPORT INFORMATION
  Report Type: Spontaneous
  Country: EU (occurrence: EU)
  Receive Date: 20250909
  Receipt Date: 20250909
  Transmission Date: 20251021
  Serious: Yes (Hospitalization, Other)
  Sender: MERCK SHARP & DOHME LLC
  Company Number: None

PATIENT
  Age: 66 Year
  Sex: Male
  Weight: 44.6 kg

DRUGS (4)
  1. KEYTRUDA [Suspect]
     Active Substance: PEMBROLIZUMAB
     Indication: Lung neoplasm malignant
     Route: 042
     Dates: start: 20250804, end: 20250804
  2. PEMETREXED [Suspect]
     Active Substance: PEMETREXED
     Indication: Lung neoplasm malignant
     Route: 042
     Dates: start: 20250804, end: 20250804
  3. CARBOPLATIN [Suspect]
     Active Substance: CARBOPLATIN
     Indication: Lung neoplasm malignant
     Route: 042
     Dates: start: 20250804, end: 20250804
  4. FULPHILA [Suspect]
     Active Substance: PEGFILGRASTIM-JMDB
     Indication: Colony stimulating factor therapy
     Route: 058
     Dates: start: 20250806, end: 20250806

REACTIONS (3)
  - Myocardial infarction [Recovered/Resolved with Sequelae]
  - Coronary angioplasty [Recovered/Resolved with Sequelae]
  - Coronary artery occlusion [Recovered/Resolved with Sequelae]

NARRATIVE: CASE EVENT DATE: 20250814
